FAERS Safety Report 7057324-1 (Version None)
Quarter: 2010Q4

REPORT INFORMATION
  Report Type: 
  Country: None (occurrence: None)
  Receive Date: 20101022
  Receipt Date: 20101021
  Transmission Date: 20110411
  Serious: Yes (Other)
  Sender: FDA-Public Use
  Company Number: US-BRISTOL-MYERS SQUIBB COMPANY-15343924

PATIENT
  Age: 9 Year
  Sex: Male

DRUGS (7)
  1. TENIPOSIDE [Suspect]
     Indication: LYMPHOHISTIOCYTOSIS
     Dosage: 1 DF=3.4 G/M2
     Route: 042
  2. ETOPOSIDE [Suspect]
     Indication: LYMPHOHISTIOCYTOSIS
     Dosage: 1 DF=13.6 G/M2
     Route: 048
  3. ETOPOSIDE [Suspect]
     Dosage: 1 DF=6.9 G/M2
     Route: 042
  4. STEROIDS [Concomitant]
  5. INDOMETHACIN [Concomitant]
  6. CYCLOSPORINE [Concomitant]
  7. IMMUNE GLOBULIN NOS [Concomitant]

REACTIONS (2)
  - BONE MARROW TRANSPLANT [None]
  - MYELODYSPLASTIC SYNDROME [None]
